FAERS Safety Report 6931651-8 (Version None)
Quarter: 2010Q3

REPORT INFORMATION
  Report Type: 
  Country: None (occurrence: None)
  Receive Date: 20100812
  Receipt Date: 20090625
  Transmission Date: 20110219
  Serious: No
  Sender: FDA-Public Use
  Company Number: 2009-00240

PATIENT
  Age: 81 Year
  Sex: Male
  Weight: 68.0396 kg

DRUGS (5)
  1. ZICAM ALLERGY RELIEF NASAL GEL [Suspect]
     Dosage: QD X 1 WEEK; MID-2006 - 1 WEEK
     Dates: start: 20060101
  2. DICLOFENAC SODIUM [Concomitant]
  3. TEMAZEPAM [Concomitant]
  4. CLONAZEPAM [Concomitant]
  5. BUPROPION HCL [Concomitant]

REACTIONS (1)
  - ANOSMIA [None]
